FAERS Safety Report 5377705-1 (Version None)
Quarter: 2007Q3

REPORT INFORMATION
  Report Type: 
  Country: None (occurrence: None)
  Receive Date: 20070703
  Receipt Date: 20070625
  Transmission Date: 20080115
  Serious: Yes (Other)
  Sender: FDA-Public Use
  Company Number: AU-ROXANE LABORATORIES, INC-2007-BP-15848RO

PATIENT
  Age: 8 Year
  Sex: Male

DRUGS (3)
  1. METHOTREXATE [Suspect]
     Indication: CHEMOTHERAPY
  2. MERCAPTOPURINE [Suspect]
     Indication: CHEMOTHERAPY
  3. VINCRISTINE [Suspect]
     Indication: CHEMOTHERAPY

REACTIONS (5)
  - HYPOGAMMAGLOBULINAEMIA [None]
  - LOWER RESPIRATORY TRACT INFECTION [None]
  - MADAROSIS [None]
  - RASH PAPULAR [None]
  - VIRAL INFECTION [None]
